FAERS Safety Report 9678009 (Version 1)
Quarter: 2013Q4

REPORT INFORMATION
  Report Type: Spontaneous
  Country: US (occurrence: US)
  Receive Date: 20131108
  Receipt Date: 20131108
  Transmission Date: 20140711
  Serious: Yes (Hospitalization)
  Sender: FDA-Public Use
  Company Number: US-BAYER-2013-135142

PATIENT
  Age: 34 Year
  Sex: Female
  Weight: 61.22 kg

DRUGS (10)
  1. YAZ [Suspect]
  2. YASMIN [Suspect]
  3. IMITREX [Concomitant]
     Indication: MIGRAINE
     Dosage: 100 MG, UNK
     Dates: start: 20040222
  4. LEVAQUIN [Concomitant]
     Indication: URINARY TRACT INFECTION
     Dosage: 500 MG, UNK
  5. FLONASE [Concomitant]
     Indication: EUSTACHIAN TUBE DYSFUNCTION
  6. ADVIL MIGRAINE [Concomitant]
     Indication: MIGRAINE
     Dosage: 600 MG, UNK
     Dates: start: 20040220
  7. MOTRIN [Concomitant]
     Indication: MIGRAINE
     Dosage: 600 MG, UNK
     Dates: start: 20040220
  8. ADVIL [Concomitant]
     Indication: MIGRAINE
     Dosage: 600 MG, UNK
     Dates: start: 20040220
  9. TAILENOL [Concomitant]
     Indication: MIGRAINE
     Dosage: UNK
     Dates: start: 20040222
  10. ALLEGRA [Concomitant]
     Indication: HYPERSENSITIVITY
     Dosage: UNK
     Dates: start: 20040225

REACTIONS (2)
  - Superior sagittal sinus thrombosis [None]
  - Transverse sinus thrombosis [None]
